FAERS Safety Report 5593038-2 (Version None)
Quarter: 2008Q1

REPORT INFORMATION
  Report Type: 
  Country: None (occurrence: None)
  Receive Date: 20080116
  Receipt Date: 20080107
  Transmission Date: 20080703
  Serious: Yes (Hospitalization)
  Sender: FDA-Public Use
  Company Number: FR-JNJFOC-20080100868

PATIENT
  Age: 51 Year
  Sex: Female

DRUGS (8)
  1. OFLOCET [Suspect]
     Indication: INFECTION PROPHYLAXIS
     Route: 048
  2. CORTANCYL [Suspect]
     Indication: AUTOIMMUNE HEPATITIS
     Route: 048
  3. INEXIUM [Suspect]
     Route: 042
  4. INEXIUM [Suspect]
     Indication: OESOPHAGEAL VARICES HAEMORRHAGE
     Route: 042
  5. GLYPRESSINE [Suspect]
     Indication: HAEMORRHAGE
     Route: 042
  6. INEXIUM [Concomitant]
     Route: 048
  7. INEXIUM [Concomitant]
     Route: 048
  8. XANAX [Concomitant]
     Route: 048

REACTIONS (1)
  - HYPONATRAEMIA [None]
